FAERS Safety Report 18312624 (Version 2)
Quarter: 2020Q4

REPORT INFORMATION
  Report Type: Report from Study
  Country: DE (occurrence: DE)
  Receive Date: 20200925
  Receipt Date: 20201007
  Transmission Date: 20210113
  Serious: Yes (Hospitalization)
  Sender: FDA-Public Use
  Company Number: DE-B.I. PHARMACEUTICALS,INC./RIDGEFIELD-2018-BI-018727

PATIENT
  Age: 86 Year
  Weight: 82.3 kg

DRUGS (38)
  1. METAMIZOL [Concomitant]
     Active Substance: METAMIZOLE SODIUM
     Indication: SPINAL PAIN
     Route: 048
     Dates: start: 20171124
  2. DARBEPOETIN ALFA [Concomitant]
     Active Substance: DARBEPOETIN ALFA
     Indication: ANAEMIA
     Route: 048
     Dates: start: 20171124
  3. OXYBUGAMMA [Concomitant]
     Indication: HYPERTONIC BLADDER
     Route: 048
     Dates: start: 20180814
  4. FERINJECT [Concomitant]
     Active Substance: FERRIC CARBOXYMALTOSE
     Indication: ANAEMIA
     Route: 042
     Dates: start: 20181108
  5. TORASEMIDE [Concomitant]
     Active Substance: TORSEMIDE
     Indication: CARDIAC FAILURE
     Route: 048
     Dates: start: 20171124
  6. TORASEMIDE [Concomitant]
     Active Substance: TORSEMIDE
     Route: 048
     Dates: start: 20181108
  7. LEVOTHYROXIN [Concomitant]
     Active Substance: LEVOTHYROXINE
     Route: 048
     Dates: start: 20181108
  8. TAMSULOSIN [Concomitant]
     Active Substance: TAMSULOSIN
     Route: 048
     Dates: start: 20171124
  9. COLECALCIFEROL [Concomitant]
     Active Substance: CHOLECALCIFEROL
     Indication: PROPHYLAXIS
     Route: 048
     Dates: start: 20171124
  10. DARBEPOETIN ALFA [Concomitant]
     Active Substance: DARBEPOETIN ALFA
     Route: 042
     Dates: start: 20181108
  11. CLEMASTIN [Concomitant]
     Active Substance: CLEMASTINE
     Indication: PRURITUS
     Route: 048
     Dates: start: 20180919
  12. EPOETIN ALFA [Concomitant]
     Active Substance: ERYTHROPOIETIN
     Indication: ANAEMIA
     Route: 042
     Dates: start: 20181108
  13. SIMVASTATIN. [Concomitant]
     Active Substance: SIMVASTATIN
     Route: 048
     Dates: start: 20181228
  14. COLECALCIFEROL [Concomitant]
     Active Substance: CHOLECALCIFEROL
     Indication: RICKETS
  15. SPIRONOLACTONE. [Concomitant]
     Active Substance: SPIRONOLACTONE
     Route: 048
     Dates: start: 20181108
  16. ALDACTONE [Concomitant]
     Active Substance: SPIRONOLACTONE
     Indication: CARDIAC FAILURE
     Route: 048
     Dates: start: 20181108
  17. SITAGLIPTIN [Concomitant]
     Active Substance: SITAGLIPTIN
     Indication: DIABETES MELLITUS
     Route: 048
     Dates: start: 20171124
  18. SODIUM BICARBONATE. [Concomitant]
     Active Substance: SODIUM BICARBONATE
     Indication: CHRONIC KIDNEY DISEASE
     Route: 048
     Dates: start: 20171124
  19. TAMSULOSIN [Concomitant]
     Active Substance: TAMSULOSIN
     Indication: BENIGN PROSTATIC HYPERPLASIA
     Route: 048
     Dates: start: 201607
  20. ASPIRIN. [Concomitant]
     Active Substance: ASPIRIN
     Indication: CORONARY ARTERY DISEASE
     Route: 048
     Dates: start: 20171124
  21. AMLODIPINE [Concomitant]
     Active Substance: AMLODIPINE BESYLATE
     Indication: HYPERTENSION
     Route: 048
     Dates: start: 20171124
  22. LEVOCARNITIN [Concomitant]
     Indication: DIALYSIS
     Route: 042
     Dates: start: 20181108
  23. RAMIPRIL. [Concomitant]
     Active Substance: RAMIPRIL
     Indication: CARDIAC FAILURE
     Route: 048
     Dates: start: 20171124
  24. SIMVASTATIN. [Concomitant]
     Active Substance: SIMVASTATIN
     Indication: CORONARY ARTERY DISEASE
     Route: 048
     Dates: start: 20171124
  25. GLYCOPYRRONIUM;INDACATEROL [Concomitant]
     Active Substance: GLYCOPYRRONIUM\INDACATEROL
     Dosage: 85/43 MICROGRAM
     Route: 055
  26. CORVATON [Concomitant]
     Active Substance: MOLSIDOMINE
     Indication: CARDIAC FAILURE
  27. FOLIC ACID. [Concomitant]
     Active Substance: FOLIC ACID
     Indication: ANAEMIA
     Route: 048
     Dates: start: 20171124
  28. SPIRONOLACTONE. [Concomitant]
     Active Substance: SPIRONOLACTONE
     Indication: CARDIAC FAILURE
     Route: 048
     Dates: start: 20181017
  29. SEVELAMER [Concomitant]
     Active Substance: SEVELAMER
     Indication: DIALYSIS
     Route: 048
     Dates: start: 201811
  30. RESTEX [Concomitant]
     Active Substance: BENSERAZIDE\LEVODOPA
     Indication: RESTLESS LEGS SYNDROME
     Dosage: TOTAL DAILY DOSE: 200/50 MILLIGRAM
     Route: 048
     Dates: start: 20190904
  31. LEVOTHYROXIN [Concomitant]
     Active Substance: LEVOTHYROXINE
     Indication: HYPOTHYROIDISM
     Route: 048
     Dates: start: 20171124
  32. OMEPRAZOLE. [Concomitant]
     Active Substance: OMEPRAZOLE
     Indication: PROPHYLAXIS
     Route: 048
     Dates: start: 20171124
  33. CORVATON [Concomitant]
     Active Substance: MOLSIDOMINE
     Indication: CORONARY ARTERY DISEASE
     Route: 048
     Dates: start: 20181031
  34. FERMED [SACCHARATED IRON OXIDE] [Concomitant]
     Indication: ANAEMIA
     Route: 042
     Dates: start: 20181108
  35. GABAPENTIN. [Concomitant]
     Active Substance: GABAPENTIN
     Indication: NEURALGIA
     Route: 048
     Dates: start: 20190904
  36. PLACEBO [Suspect]
     Active Substance: UNSPECIFIED INGREDIENT
     Indication: CARDIAC FAILURE
     Route: 048
     Dates: start: 20180110, end: 20181022
  37. GLYCOPYRRONIUM;INDACATEROL [Concomitant]
     Active Substance: GLYCOPYRRONIUM\INDACATEROL
     Indication: CHRONIC OBSTRUCTIVE PULMONARY DISEASE
     Route: 055
     Dates: start: 20171124
  38. PROPIVERINE [Concomitant]
     Active Substance: PROPIVERINE
     Indication: HYPERTONIC BLADDER
     Route: 048
     Dates: start: 20171124

REACTIONS (4)
  - Skin ulcer [Recovered/Resolved]
  - Diabetic foot [Recovered/Resolved]
  - Skin ulcer [Recovered/Resolved]
  - Renal impairment [Unknown]

NARRATIVE: CASE EVENT DATE: 20180210
